FAERS Safety Report 6217575-2 (Version None)
Quarter: 2009Q2

REPORT INFORMATION
  Report Type: 
  Country: None (occurrence: None)
  Receive Date: 20090608
  Receipt Date: 20090227
  Transmission Date: 20091009
  Serious: No
  Sender: FDA-Public Use
  Company Number: A0771597A

PATIENT
  Sex: Female

DRUGS (3)
  1. BUPROPION HYDROCHLORIDE [Suspect]
     Route: 048
  2. BUPROPION HYDROCHLORIDE [Suspect]
     Route: 048
  3. CONCURRENT MEDICATIONS [Concomitant]

REACTIONS (3)
  - DRUG INEFFECTIVE [None]
  - PANIC ATTACK [None]
  - PRODUCT SOLUBILITY ABNORMAL [None]
